FAERS Safety Report 25239656 (Version 1)
Quarter: 2025Q2

REPORT INFORMATION
  Report Type: Spontaneous
  Country: RU (occurrence: RU)
  Receive Date: 20250425
  Receipt Date: 20250425
  Transmission Date: 20250717
  Serious: Yes (Hospitalization)
  Sender: BAUSCH AND LOMB
  Company Number: RU-MLMSERVICE-20250411-PI466899-00177-1

PATIENT
  Sex: Female

DRUGS (7)
  1. HYDROCORTISONE [Interacting]
     Active Substance: HYDROCORTISONE
     Indication: Primary adrenal insufficiency
     Dosage: BY JET STREAM
     Route: 042
     Dates: start: 202210
  2. FLUDROCORTISONE [Interacting]
     Active Substance: FLUDROCORTISONE
     Indication: Primary adrenal insufficiency
     Dosage: 25-50 MG IN THE MORNING, WITH DOSE ADJUSTMENT UNDER THE CONTROL OF WELL-BEING.
     Route: 065
     Dates: start: 202210
  3. FLUDROCORTISONE [Interacting]
     Active Substance: FLUDROCORTISONE
     Dosage: 50 MG IN THE MORNING
     Route: 065
     Dates: start: 2023
  4. RIFAMPIN [Interacting]
     Active Substance: RIFAMPIN
     Indication: Tuberculosis
     Dosage: IN THE MORNING BEFORE MEAL
     Route: 065
     Dates: start: 202307, end: 2023
  5. ISONIAZID [Concomitant]
     Active Substance: ISONIAZID
     Indication: Tuberculosis
     Dosage: IN THE MORNING AFTER MEALS.
     Dates: start: 202307
  6. PYRAZINAMIDE [Concomitant]
     Active Substance: PYRAZINAMIDE
     Indication: Tuberculosis
     Dosage: IN THE MORNING AFTER MEALS.
     Dates: start: 202307
  7. ETHAMBUTOL [Concomitant]
     Active Substance: ETHAMBUTOL HYDROCHLORIDE
     Indication: Tuberculosis
     Dosage: AFTER LUNCH
     Dates: start: 202307

REACTIONS (2)
  - Drug interaction [Unknown]
  - Adrenocortical insufficiency acute [Unknown]

NARRATIVE: CASE EVENT DATE: 20230101
